FAERS Safety Report 16753098 (Version 2)
Quarter: 2019Q3

REPORT INFORMATION
  Report Type: Report from Study
  Country: ES (occurrence: ES)
  Receive Date: 20190829
  Receipt Date: 20190906
  Transmission Date: 20191005
  Serious: Yes (Hospitalization)
  Sender: FDA-Public Use
  Company Number: ES-ROCHE-2387530

PATIENT
  Age: 55 Year
  Sex: Female
  Weight: 83 kg

DRUGS (6)
  1. TRASTUZUMAB EMTANSINE [Suspect]
     Active Substance: ADO-TRASTUZUMAB EMTANSINE
     Indication: HER-2 POSITIVE BREAST CANCER
     Dosage: ON 08/AUG/2019, SHE RECEIVED LAST DOSE  OF TRASTUZUMAB EMTANSINE PRIOR TO THE SAE (SERIOUS ADVERSE E
     Route: 065
     Dates: start: 20181119
  2. BISOPROLOL [Concomitant]
     Active Substance: BISOPROLOL
     Indication: HYPERCHOLESTEROLAEMIA
     Route: 065
     Dates: start: 201611
  3. SIMVASTATIN. [Concomitant]
     Active Substance: SIMVASTATIN
     Indication: HYPERCHOLESTEROLAEMIA
     Route: 065
     Dates: start: 201711
  4. TRAMADOL. [Concomitant]
     Active Substance: TRAMADOL
     Indication: NECK PAIN
     Route: 065
  5. ONDANSETRON [Concomitant]
     Active Substance: ONDANSETRON
     Route: 042
  6. BEMIPARIN [Concomitant]
     Active Substance: BEMIPARIN
     Indication: DEVICE RELATED THROMBOSIS
     Route: 065
     Dates: start: 201610

REACTIONS (1)
  - Urinary tract infection [Recovered/Resolved]

NARRATIVE: CASE EVENT DATE: 20190813
